FAERS Safety Report 9379945 (Version 3)
Quarter: 2013Q3

REPORT INFORMATION
  Report Type: Report from Study
  Country: AR (occurrence: AR)
  Receive Date: 20130702
  Receipt Date: 20130819
  Transmission Date: 20140515
  Serious: Yes (Hospitalization, Other)
  Sender: FDA-Public Use
  Company Number: PHHY2013AR068707

PATIENT
  Sex: Female

DRUGS (3)
  1. DIOVAN [Suspect]
     Indication: HYPERTENSION
     Dosage: 160 MG, UNK
     Route: 048
  2. DIOVAN [Suspect]
     Indication: ARRHYTHMIA
  3. DIOVAN [Suspect]
     Indication: OFF LABEL USE

REACTIONS (8)
  - Accident [Recovering/Resolving]
  - Rib fracture [Recovering/Resolving]
  - Clavicle fracture [Recovering/Resolving]
  - Upper limb fracture [Unknown]
  - Traumatic lung injury [Unknown]
  - Dyspnoea [Unknown]
  - Hypertension [Recovered/Resolved]
  - Drug ineffective [Recovered/Resolved]
